FAERS Safety Report 5943619-9 (Version None)
Quarter: 2008Q4

REPORT INFORMATION
  Report Type: 
  Country: None (occurrence: None)
  Receive Date: 20081106
  Receipt Date: 20081028
  Transmission Date: 20090506
  Serious: Yes (Death, Other)
  Sender: FDA-Public Use
  Company Number: IS-WYE-H06676508

PATIENT
  Age: 82 Year
  Sex: Female

DRUGS (1)
  1. CORDARONE [Suspect]
     Indication: HEART RATE IRREGULAR
     Dosage: UNSPECIFIED
     Route: 048

REACTIONS (2)
  - PANCREATITIS [None]
  - PNEUMONIA [None]
